FAERS Safety Report 15825808 (Version 1)
Quarter: 2019Q1

REPORT INFORMATION
  Report Type: Spontaneous
  Country: US (occurrence: US)
  Receive Date: 20190115
  Receipt Date: 20190115
  Transmission Date: 20190417
  Serious: Yes (Other)
  Sender: FDA-Public Use
  Company Number: US-GLAXOSMITHKLINE-US2019003427

PATIENT
  Age: 77 Year
  Sex: Female

DRUGS (1)
  1. BREO ELLIPTA [Suspect]
     Active Substance: FLUTICASONE FUROATE\VILANTEROL TRIFENATATE
     Indication: PRODUCT USED FOR UNKNOWN INDICATION
     Dosage: 1 PUFF(S), QD
     Route: 055
     Dates: start: 201801

REACTIONS (10)
  - Dysphonia [Not Recovered/Not Resolved]
  - Cardiac pacemaker insertion [Unknown]
  - Candida infection [Unknown]
  - Product prescribing error [Unknown]
  - Visual impairment [Not Recovered/Not Resolved]
  - Arthropathy [Unknown]
  - Heart rate irregular [Unknown]
  - Cataract [Not Recovered/Not Resolved]
  - Nerve compression [Not Recovered/Not Resolved]
  - Insomnia [Unknown]

NARRATIVE: CASE EVENT DATE: 201801
